FAERS Safety Report 4710354-4 (Version None)
Quarter: 2005Q3

REPORT INFORMATION
  Report Type: 
  Country: None (occurrence: None)
  Receive Date: 20050707
  Receipt Date: 20050628
  Transmission Date: 20060218
  Serious: Yes (Other)
  Sender: FDA-Public Use
  Company Number: 2005093995

PATIENT
  Age: 69 Year
  Sex: Female
  Weight: 64.8644 kg

DRUGS (6)
  1. NORVASC [Suspect]
     Indication: BLOOD PRESSURE
     Dosage: 5 MG (5 MG, 1 IN 1 D), ORAL
     Route: 048
     Dates: end: 20050101
  2. CHROMAGEN (ASCORBIC ACID, CYANOCOBALAMIN, FERROUS FUMARATE, STOMACH DE [Concomitant]
  3. PRILOSEC [Concomitant]
  4. CRESTOR [Concomitant]
  5. TOPROL-XL [Concomitant]
  6. HYDROCHLOROTHIAZIDE [Concomitant]

REACTIONS (2)
  - EXTRASYSTOLES [None]
  - PALPITATIONS [None]
